FAERS Safety Report 25965983 (Version 1)
Quarter: 2025Q4

REPORT INFORMATION
  Report Type: Spontaneous
  Country: US (occurrence: US)
  Receive Date: 20251028
  Receipt Date: 20251028
  Transmission Date: 20260118
  Serious: No
  Sender: ROCHE
  Company Number: US-ROCHE-10000413707

PATIENT
  Sex: Female

DRUGS (1)
  1. XOLAIR [Suspect]
     Active Substance: OMALIZUMAB
     Indication: Idiopathic urticaria
     Dosage: (STRENGTH: 300MG/2ML)
     Route: 058
     Dates: start: 202411

REACTIONS (2)
  - Injection site erythema [Unknown]
  - Injection site pruritus [Unknown]
